FAERS Safety Report 10640674 (Version 1)
Quarter: 2014Q4

REPORT INFORMATION
  Report Type: Spontaneous
  Country: US (occurrence: None)
  Receive Date: 20141208
  Receipt Date: 20141208
  Transmission Date: 20150529
  Serious: Yes (Disabling)
  Sender: FDA-Public Use
  Company Number: None

PATIENT
  Age: 72 Year
  Sex: Female
  Weight: 61.24 kg

DRUGS (2)
  1. MIRTAZAPINE. [Suspect]
     Active Substance: MIRTAZAPINE
     Indication: ANXIETY
     Route: 048
  2. GABAPENTIN 300 MG [Suspect]
     Active Substance: GABAPENTIN
     Indication: ANXIETY
     Route: 048
     Dates: start: 20140724, end: 20140724

REACTIONS (6)
  - Dyspnoea [None]
  - Insomnia [None]
  - Nervous system disorder [None]
  - Akathisia [None]
  - Quality of life decreased [None]
  - Product quality issue [None]

NARRATIVE: CASE EVENT DATE: 20130830
